FAERS Safety Report 8395666-8 (Version None)
Quarter: 2012Q2

REPORT INFORMATION
  Report Type: 
  Country: None (occurrence: None)
  Receive Date: 20120530
  Receipt Date: 20120202
  Transmission Date: 20120825
  Serious: No
  Sender: FDA-Public Use
  Company Number: US-GLAXOSMITHKLINE-A0964361A

PATIENT
  Age: 16 Year
  Sex: Female

DRUGS (5)
  1. IBUPROFEN [Concomitant]
  2. OXYCODONE HCL [Concomitant]
  3. CYCLOBENAZPRINE [Concomitant]
  4. VENTOLIN [Suspect]
     Indication: ASTHMA
     Route: 055
  5. MORPHINE SULFATE [Concomitant]

REACTIONS (1)
  - DRUG EFFECT DECREASED [None]
